FAERS Safety Report 25365382 (Version 1)
Quarter: 2025Q2

REPORT INFORMATION
  Report Type: Spontaneous
  Country: FR (occurrence: FR)
  Receive Date: 20250527
  Receipt Date: 20250527
  Transmission Date: 20250716
  Serious: Yes (Other)
  Sender: ALEXION PHARMACEUTICALS
  Company Number: FR-AstraZeneca-CH-00874966A

PATIENT

DRUGS (2)
  1. TAGRISSO [Suspect]
     Active Substance: OSIMERTINIB
     Indication: Non-small cell lung cancer
     Dosage: 80 MILLIGRAM, QD
  2. TAGRISSO [Suspect]
     Active Substance: OSIMERTINIB

REACTIONS (6)
  - Malignant neoplasm progression [Unknown]
  - Headache [Unknown]
  - Dizziness [Unknown]
  - Asthenia [Unknown]
  - Weight decreased [Unknown]
  - Off label use [Unknown]
